FAERS Safety Report 25162659 (Version 1)
Quarter: 2025Q2

REPORT INFORMATION
  Report Type: Spontaneous
  Country: US (occurrence: US)
  Receive Date: 20250404
  Receipt Date: 20250404
  Transmission Date: 20250717
  Serious: Yes (Other)
  Sender: AUTOLUS THERAPEUTICS
  Company Number: US-Autolus Ltd-2174224

PATIENT
  Sex: Female

DRUGS (1)
  1. AUCATZYL [Suspect]
     Active Substance: OBECABTAGENE AUTOLEUCEL

REACTIONS (2)
  - Cytokine release syndrome [Unknown]
  - Serum ferritin increased [Unknown]
